FAERS Safety Report 5465744-1 (Version None)
Quarter: 2007Q3

REPORT INFORMATION
  Report Type: 
  Country: None (occurrence: None)
  Receive Date: 20070924
  Receipt Date: 20070918
  Transmission Date: 20080115
  Serious: Yes (Disabling)
  Sender: FDA-Public Use
  Company Number: A0665779A

PATIENT
  Age: 57 Year
  Sex: Female

DRUGS (2)
  1. ADVAIR DISKUS 100/50 [Suspect]
     Indication: ASTHMA
     Dosage: 1PUFF TWICE PER DAY
     Route: 055
     Dates: start: 20040101
  2. PROVENTIL [Concomitant]

REACTIONS (5)
  - CANDIDIASIS [None]
  - LOWER RESPIRATORY TRACT INFECTION [None]
  - LUNG NEOPLASM [None]
  - PNEUMONIA [None]
  - SEASONAL ALLERGY [None]
